FAERS Safety Report 12178643 (Version 1)
Quarter: 2016Q1

REPORT INFORMATION
  Report Type: Spontaneous
  Country: US (occurrence: None)
  Receive Date: 20160314
  Receipt Date: 20160314
  Transmission Date: 20160526
  Serious: Yes (Other)
  Sender: FDA-Public Use
  Company Number: None

PATIENT
  Age: 56 Year

DRUGS (1)
  1. CHANTIX [Suspect]
     Active Substance: VARENICLINE TARTRATE
     Indication: SMOKING CESSATION THERAPY
     Route: 048
     Dates: start: 20160226, end: 20160310

REACTIONS (7)
  - Feeling abnormal [None]
  - Mydriasis [None]
  - Drug dose omission [None]
  - Loss of consciousness [None]
  - Somnambulism [None]
  - Eye contusion [None]
  - Alcohol use [None]

NARRATIVE: CASE EVENT DATE: 20160310
